FAERS Safety Report 17267479 (Version 1)
Quarter: 2019Q4

REPORT INFORMATION
  Report Type: Spontaneous
  Country: US (occurrence: US)
  Receive Date: 20191220
  Receipt Date: 20191220
  Transmission Date: 20200122
  Serious: No
  Sender: FDA-Public Use
  Company Number: None

PATIENT
  Age: 82 Year
  Sex: Female

DRUGS (1)
  1. PIQRAY [Suspect]
     Active Substance: ALPELISIB
     Route: 048
     Dates: start: 201911

REACTIONS (9)
  - Decreased appetite [None]
  - Dysgeusia [None]
  - Blood creatinine increased [None]
  - Fatigue [None]
  - Urinary tract infection [None]
  - Blood glucose increased [None]
  - Pyrexia [None]
  - Constipation [None]
  - Anaemia [None]

NARRATIVE: CASE EVENT DATE: 20191128
